FAERS Safety Report 5482178-4 (Version None)
Quarter: 2007Q4

REPORT INFORMATION
  Report Type: 
  Country: None (occurrence: None)
  Receive Date: 20071005
  Receipt Date: 20070920
  Transmission Date: 20080405
  Serious: Yes (Life-Threatening)
  Sender: FDA-Public Use
  Company Number: 07H-167-0313263-00

PATIENT
  Age: 50 Year
  Sex: Female

DRUGS (1)
  1. ONDANSETRON [Suspect]
     Dosage: 4 MG, INTRAVENOUS
     Route: 042
     Dates: start: 20070606, end: 20070606

REACTIONS (1)
  - CARDIAC ARREST [None]
